FAERS Safety Report 5984434-X (Version None)
Quarter: 2008Q4

REPORT INFORMATION
  Report Type: 
  Country: None (occurrence: None)
  Receive Date: 20081203
  Receipt Date: 20081203
  Transmission Date: 20090506
  Serious: No
  Sender: FDA-Public Use
  Company Number: None

PATIENT
  Age: 52 Year
  Sex: Female
  Weight: 113.3993 kg

DRUGS (1)
  1. LAMOTRIGINE [Suspect]
     Indication: AFFECTIVE DISORDER
     Dosage: 150 MG BID PO
     Route: 048
     Dates: start: 20080401, end: 20080901

REACTIONS (2)
  - PERSONALITY CHANGE [None]
  - THERAPEUTIC RESPONSE UNEXPECTED WITH DRUG SUBSTITUTION [None]
